FAERS Safety Report 7844056 (Version 15)
Quarter: 2012Q4

REPORT INFORMATION
  Report Type: 
  Country: BR (occurrence: BR)
  Receive Date: 20110307
  Receipt Date: 20121218
  Transmission Date: 20130627
  Serious: Yes (Other)
  Sender: FDA-Public Use
  Company Number: BR-PFIZER INC-2011042912

PATIENT
  Age: 29 Year
  Sex: Female
  Weight: 52 kg

DRUGS (1)
  1. NORDETTE-21 [Suspect]
     Indication: CONTRACEPTION
     Dosage: 1 DF, 1x/day
     Route: 048
     Dates: start: 2000, end: 2012

REACTIONS (22)
  - Inappropriate schedule of drug administration [Not Recovered/Not Resolved]
  - Urinary tract infection [Recovered/Resolved]
  - Uterine disorder [Not Recovered/Not Resolved]
  - Uterine leiomyoma [Recovered/Resolved]
  - Cholelithiasis [Unknown]
  - Blood cholesterol increased [Unknown]
  - Visual impairment [Recovered/Resolved]
  - Headache [Not Recovered/Not Resolved]
  - Malaise [Not Recovered/Not Resolved]
  - Feeling abnormal [Unknown]
  - Amenorrhoea [Recovered/Resolved]
  - Abnormal withdrawal bleeding [Not Recovered/Not Resolved]
  - Metrorrhagia [Unknown]
  - Anxiety [Recovered/Resolved]
  - Increased appetite [Recovered/Resolved]
  - Weight increased [Not Recovered/Not Resolved]
  - Amenorrhoea [Recovered/Resolved]
  - Menstruation irregular [Unknown]
  - Menstrual disorder [Unknown]
  - Weight decreased [Unknown]
  - Amenorrhoea [Recovered/Resolved]
  - Unintended pregnancy [Unknown]
